FAERS Safety Report 4851326-9 (Version None)
Quarter: 2005Q4

REPORT INFORMATION
  Report Type: 
  Country: None (occurrence: None)
  Receive Date: 20051207
  Receipt Date: 20051124
  Transmission Date: 20060501
  Serious: Yes (Hospitalization)
  Sender: FDA-Public Use
  Company Number: HQWYE726529NOV05

PATIENT
  Age: 58 Year
  Sex: Female

DRUGS (5)
  1. PANTOPRAZOLE SODIUM [Suspect]
     Dosage: ORAL
     Route: 048
     Dates: start: 20020101, end: 20051010
  2. GINKOR (GINKO TREE LEAVES EXTRACT/TROXERUTIN) [Suspect]
     Dosage: DF ORAL
     Route: 048
     Dates: start: 19970101
  3. PROZAC [Suspect]
     Dosage: DF  ORAL
     Route: 048
     Dates: start: 19960101
  4. STRESAM (ETIFOXINE) [Suspect]
     Dosage: 50 MG ORAL
     Route: 048
     Dates: start: 20020101, end: 20051010
  5. CHONDROSULF (CHONDROITIN SULFATE SODIUM) DFC [Concomitant]

REACTIONS (2)
  - GRANULOMATOUS LIVER DISEASE [None]
  - HEPATIC FIBROSIS [None]
